FAERS Safety Report 10390733 (Version 1)
Quarter: 2014Q3

REPORT INFORMATION
  Report Type: Spontaneous
  Country: GB (occurrence: None)
  Receive Date: 20140814
  Receipt Date: 20140814
  Transmission Date: 20150326
  Serious: Yes (Congenital Anomaly, Other)
  Sender: FDA-Public Use
  Company Number: FK201403217

PATIENT
  Sex: Male

DRUGS (2)
  1. VALPROATE [Suspect]
     Active Substance: VALPROATE SODIUM
     Indication: EPILEPSY
     Dosage: 1500MG 1 IN 1 D, TRANSPLACENTAL
  2. CARBAMAZEPINE (CARBAMAZEPINE) [Suspect]
     Active Substance: CARBAMAZEPINE
     Indication: EPILEPSY
     Dosage: 600MG, 1 IN 1D TRANSPLACENTAL

REACTIONS (12)
  - Maternal drugs affecting foetus [None]
  - Caesarean section [None]
  - Atrial septal defect [None]
  - Foetal anticonvulsant syndrome [None]
  - Coloboma [None]
  - Cleft palate [None]
  - Hypertelorism of orbit [None]
  - Motor developmental delay [None]
  - Failure to thrive [None]
  - Hypospadias [None]
  - Dacryostenosis congenital [None]
  - Congenital hearing disorder [None]
